FAERS Safety Report 10381945 (Version 1)
Quarter: 2014Q3

REPORT INFORMATION
  Report Type: Spontaneous
  Country: US (occurrence: US)
  Receive Date: 20140813
  Receipt Date: 20140813
  Transmission Date: 20150326
  Serious: No
  Sender: FDA-Public Use
  Company Number: US-AMGEN-USASP2014060479

PATIENT
  Age: 17 Year
  Sex: Female

DRUGS (1)
  1. ENBREL [Suspect]
     Active Substance: ETANERCEPT
     Indication: JUVENILE IDIOPATHIC ARTHRITIS
     Dosage: 35MG/0.7ML, QWK
     Route: 058
     Dates: start: 201209

REACTIONS (6)
  - Flushing [Unknown]
  - Feeling hot [Unknown]
  - Rash [Unknown]
  - Somnolence [Unknown]
  - Dizziness [Unknown]
  - Arthritis [Unknown]
